FAERS Safety Report 15074740 (Version 1)
Quarter: 2018Q2

REPORT INFORMATION
  Report Type: Spontaneous
  Country: US (occurrence: US)
  Receive Date: 20180627
  Receipt Date: 20180627
  Transmission Date: 20180711
  Serious: Yes (Other)
  Sender: FDA-Public Use
  Company Number: US-SAOL THERAPEUTICS-2017SAO01248

PATIENT
  Sex: Male
  Weight: 167.8 kg

DRUGS (1)
  1. BACLOFEN. [Suspect]
     Active Substance: BACLOFEN
     Indication: MUSCLE SPASTICITY
     Dosage: 399.7 ?G, \DAY
     Route: 037

REACTIONS (3)
  - Device alarm issue [Unknown]
  - Muscle spasticity [Unknown]
  - Pain [Unknown]
